FAERS Safety Report 14926446 (Version 2)
Quarter: 2018Q2

REPORT INFORMATION
  Report Type: Spontaneous
  Country: US (occurrence: US)
  Receive Date: 20180523
  Receipt Date: 20180605
  Transmission Date: 20180711
  Serious: Yes (Hospitalization)
  Sender: FDA-Public Use
  Company Number: US-JNJFOC-20180515282

PATIENT
  Sex: Female
  Weight: 47.63 kg

DRUGS (2)
  1. TYLENOL PM EXTRA STRENGTH [Suspect]
     Active Substance: ACETAMINOPHEN\DIPHENHYDRAMINE HYDROCHLORIDE
     Indication: SLEEP DISORDER THERAPY
     Dosage: 2-3 TABLETS PER NIGHT
     Route: 065
  2. MELATONIN [Concomitant]
     Active Substance: MELATONIN
     Indication: SLEEP DISORDER THERAPY
     Route: 065

REACTIONS (5)
  - Overdose [Unknown]
  - Liver disorder [Not Recovered/Not Resolved]
  - Off label use [Unknown]
  - Product use in unapproved indication [Unknown]
  - Incorrect drug administration duration [Unknown]
